FAERS Safety Report 10401389 (Version 1)
Quarter: 2014Q3

REPORT INFORMATION
  Report Type: Spontaneous
  Country: GB (occurrence: GB)
  Receive Date: 20140822
  Receipt Date: 20140822
  Transmission Date: 20150326
  Serious: Yes (Other)
  Sender: FDA-Public Use
  Company Number: GB-BRISTOL-MYERS SQUIBB COMPANY-21311162

PATIENT
  Age: 55 Year
  Sex: Female
  Weight: 90 kg

DRUGS (4)
  1. METFORMIN [Concomitant]
     Active Substance: METFORMIN HYDROCHLORIDE
  2. DAPAGLIFLOZIN [Suspect]
     Active Substance: DAPAGLIFLOZIN
     Route: 048
     Dates: start: 20140715, end: 20140802
  3. ATORVASTATIN [Concomitant]
     Active Substance: ATORVASTATIN
  4. RAMIPRIL. [Concomitant]
     Active Substance: RAMIPRIL

REACTIONS (1)
  - Postmenopausal haemorrhage [Not Recovered/Not Resolved]

NARRATIVE: CASE EVENT DATE: 20140801
